FAERS Safety Report 4619675-7 (Version None)
Quarter: 2005Q1

REPORT INFORMATION
  Report Type: 
  Country: None (occurrence: None)
  Receive Date: 20050324
  Receipt Date: 20050311
  Transmission Date: 20050727
  Serious: Yes (Other)
  Sender: FDA-Public Use
  Company Number: USA-2003-0010578

PATIENT
  Age: 44 Year
  Sex: Male
  Weight: 92.1 kg

DRUGS (7)
  1. OXYCONTIN [Suspect]
     Indication: PAIN
     Dosage: SEE IMAGE
  2. OXYCODONE HCL [Suspect]
     Indication: PAIN
     Dosage: SEE TEXT
  3. DIOVAN [Concomitant]
  4. SOMA [Concomitant]
  5. NEURONTIN [Concomitant]
  6. CLONAPIN (CLONAZEPAM) [Concomitant]
  7. LORTAB [Concomitant]

REACTIONS (36)
  - AGITATION [None]
  - ANHEDONIA [None]
  - ANXIETY [None]
  - ARTHROPATHY [None]
  - BACK PAIN [None]
  - BURNING SENSATION [None]
  - DECREASED APPETITE [None]
  - DECREASED INTEREST [None]
  - DISTURBANCE IN ATTENTION [None]
  - DIZZINESS [None]
  - DRUG ABUSER [None]
  - DRUG DEPENDENCE [None]
  - DYSKINESIA [None]
  - DYSTHYMIC DISORDER [None]
  - EMOTIONAL DISTRESS [None]
  - FACET JOINT SYNDROME [None]
  - FATIGUE [None]
  - FEELINGS OF WORTHLESSNESS [None]
  - GAIT DISTURBANCE [None]
  - HYPOAESTHESIA [None]
  - IRRITABILITY [None]
  - MENTAL STATUS CHANGES [None]
  - MUSCLE SPASMS [None]
  - MUSCULOSKELETAL STIFFNESS [None]
  - MYALGIA [None]
  - MYOFASCIAL PAIN SYNDROME [None]
  - MYOFASCITIS [None]
  - NERVOUSNESS [None]
  - PAIN [None]
  - PALPITATIONS [None]
  - PARAESTHESIA [None]
  - PSYCHIATRIC SYMPTOM [None]
  - RESTLESSNESS [None]
  - SCIATICA [None]
  - SLEEP DISORDER [None]
  - SUICIDAL IDEATION [None]
